FAERS Safety Report 7639362-0 (Version None)
Quarter: 2011Q3

REPORT INFORMATION
  Report Type: 
  Country: None (occurrence: None)
  Receive Date: 20110722
  Receipt Date: 20110629
  Transmission Date: 20111222
  Serious: Yes (Hospitalization)
  Sender: FDA-Public Use
  Company Number: CO-001835

PATIENT
  Sex: Female
  Weight: 15.4 kg

DRUGS (2)
  1. NAGLAZYME [Suspect]
     Indication: MUCOPOLYSACCHARIDOSIS VI
     Dosage: (0.58 MG/KG 1X/WEEK INTRAVENOUS DRIP)
     Route: 041
     Dates: start: 20090911
  2. LORATADINE [Concomitant]

REACTIONS (3)
  - CONJUNCTIVAL HYPERAEMIA [None]
  - ULCERATIVE KERATITIS [None]
  - CORNEAL LEUKOMA [None]
